FAERS Safety Report 10668251 (Version 2)
Quarter: 2014Q4

REPORT INFORMATION
  Report Type: Spontaneous
  Country: US (occurrence: US)
  Receive Date: 20141222
  Receipt Date: 20141222
  Transmission Date: 20150529
  Serious: No
  Sender: FDA-Public Use
  Company Number: US-GLAXOSMITHKLINE-A1078590A

PATIENT

DRUGS (12)
  1. LIPOZID [Concomitant]
  2. METFORMIN [Concomitant]
     Active Substance: METFORMIN HYDROCHLORIDE
  3. MELATONIN [Concomitant]
     Active Substance: MELATONIN
  4. SIMVASTATIN. [Concomitant]
     Active Substance: SIMVASTATIN
  5. HYDROCHLOROTHIAZIDE. [Concomitant]
     Active Substance: HYDROCHLOROTHIAZIDE
  6. ZINC [Concomitant]
     Active Substance: ZINC\ZINC CHLORIDE
  7. AVODART [Suspect]
     Active Substance: DUTASTERIDE
     Indication: DYSURIA
     Route: 048
     Dates: start: 2009
  8. VERAPAMIL [Concomitant]
     Active Substance: VERAPAMIL HYDROCHLORIDE
  9. DIOVAN [Concomitant]
     Active Substance: VALSARTAN
  10. MULTI VITAMIN [Concomitant]
     Active Substance: VITAMINS
  11. MAGNESIUM [Concomitant]
     Active Substance: MAGNESIUM
  12. AVODART [Suspect]
     Active Substance: DUTASTERIDE
     Indication: URINARY RETENTION

REACTIONS (2)
  - Incorrect product storage [Unknown]
  - Micturition disorder [Not Recovered/Not Resolved]

NARRATIVE: CASE EVENT DATE: 2014
